FAERS Safety Report 10800257 (Version 1)
Quarter: 2015Q1

REPORT INFORMATION
  Report Type: Spontaneous
  Country: US (occurrence: US)
  Receive Date: 20150216
  Receipt Date: 20150216
  Transmission Date: 20150721
  Serious: No
  Sender: FDA-Public Use
  Company Number: US-ALLERGAN-1414309US

PATIENT
  Age: 65 Year
  Sex: Female

DRUGS (5)
  1. RESTASIS [Suspect]
     Active Substance: CYCLOSPORINE
     Indication: DRY EYE
     Dosage: 2-4 DROPS, BID
     Route: 047
     Dates: start: 201312
  2. FLEXERIL [Concomitant]
     Active Substance: CYCLOBENZAPRINE HYDROCHLORIDE
     Indication: OSTEOARTHRITIS
     Dosage: 40 MG, QHS
     Route: 048
     Dates: start: 1994
  3. CELEBREX [Concomitant]
     Active Substance: CELECOXIB
     Indication: OSTEOARTHRITIS
     Dosage: TWO 200MG TABLETS, QD
     Route: 048
     Dates: start: 1994
  4. OASIS [Concomitant]
     Indication: DRY EYE
     Dosage: 2 GTT, QD TO BID
     Route: 047
     Dates: start: 201405
  5. REFRESH OPTIVE ADVANCED [Concomitant]
     Active Substance: CARBOXYMETHYLCELLULOSE SODIUM\GLYCERIN\POLYSORBATE 80
     Indication: DRY EYE
     Dosage: 2 GTT, QD TO BID
     Route: 047
     Dates: start: 201312

REACTIONS (3)
  - Eye irritation [Not Recovered/Not Resolved]
  - Incorrect dose administered [Unknown]
  - Eye pain [Not Recovered/Not Resolved]

NARRATIVE: CASE EVENT DATE: 201312
